FAERS Safety Report 21380875 (Version 2)
Quarter: 2022Q4

REPORT INFORMATION
  Report Type: Spontaneous
  Country: GR (occurrence: GR)
  Receive Date: 20220927
  Receipt Date: 20221208
  Transmission Date: 20230112
  Serious: Yes (Death, Hospitalization)
  Sender: FDA-Public Use
  Company Number: GR-VERTEX PHARMACEUTICALS-2022-014133

PATIENT
  Age: 8 Year
  Sex: Female

DRUGS (14)
  1. ELEXACAFTOR\IVACAFTOR\TEZACAFTOR [Suspect]
     Active Substance: ELEXACAFTOR\IVACAFTOR\TEZACAFTOR
     Indication: Cystic fibrosis
     Dosage: 2 TABS(37.5 MG IVACAFTOR/25MG TEZACAFTOR/80MG ELEXACAFTOR) AM
     Route: 048
     Dates: start: 20220404
  2. KALYDECO [Suspect]
     Active Substance: IVACAFTOR
     Indication: Cystic fibrosis
     Dosage: 1 TAB (75MG IVA) PM
     Route: 048
     Dates: start: 20220404
  3. PULMOZYME [Concomitant]
     Active Substance: DORNASE ALFA
     Dosage: UNK
  4. ALBUTEROL SULFATE\IPRATROPIUM BROMIDE [Concomitant]
     Active Substance: ALBUTEROL SULFATE\IPRATROPIUM BROMIDE
  5. SODIUM CHLORIDE [Concomitant]
     Active Substance: SODIUM CHLORIDE
  6. COLOMYCIN [Concomitant]
  7. AMBISOME [Concomitant]
     Active Substance: AMPHOTERICIN B
     Route: 042
  8. AVIBACTAM SODIUM\CEFTAZIDIME [Concomitant]
     Active Substance: AVIBACTAM SODIUM\CEFTAZIDIME
     Route: 042
  9. AZTREONAM [Concomitant]
     Active Substance: AZTREONAM
     Route: 042
  10. COLISTIN [Concomitant]
     Active Substance: COLISTIN
     Route: 042
  11. SULFAMETHOXAZOLE\TRIMETHOPRIM [Concomitant]
     Active Substance: SULFAMETHOXAZOLE\TRIMETHOPRIM
     Route: 042
  12. OMEPRAZOLE [Concomitant]
     Active Substance: OMEPRAZOLE
     Route: 042
  13. VITAMIN K [Concomitant]
     Active Substance: PHYTONADIONE
     Route: 042
  14. DANASE [Concomitant]

REACTIONS (5)
  - COVID-19 [Fatal]
  - Respiratory failure [Fatal]
  - Failure to thrive [Fatal]
  - Candida infection [Unknown]
  - Aspergillus infection [Unknown]
